FAERS Safety Report 13554135 (Version 1)
Quarter: 2017Q2

REPORT INFORMATION
  Report Type: Spontaneous
  Country: US (occurrence: US)
  Receive Date: 20170517
  Receipt Date: 20170517
  Transmission Date: 20170830
  Serious: Yes (Other)
  Sender: FDA-Public Use
  Company Number: US-APOTEX-2017AP012058

PATIENT
  Age: 40 Year
  Sex: Male

DRUGS (7)
  1. PIPERACILLIN [Suspect]
     Active Substance: PIPERACILLIN
     Indication: PSEUDOMONAS INFECTION
     Route: 065
  2. AMPICILLIN [Suspect]
     Active Substance: AMPICILLIN
     Indication: PSEUDOMONAS INFECTION
     Route: 065
  3. TICARCILLIN [Suspect]
     Active Substance: TICARCILLIN
     Indication: PSEUDOMONAS INFECTION
     Route: 065
  4. AMIKACIN [Suspect]
     Active Substance: AMIKACIN
     Indication: PSEUDOMONAS INFECTION
     Route: 065
  5. CIPROFLOXACIN HYDROCHLORIDE. [Suspect]
     Active Substance: CIPROFLOXACIN HYDROCHLORIDE
     Indication: PSEUDOMONAS INFECTION
     Route: 065
  6. TOBRAMYCIN. [Suspect]
     Active Substance: TOBRAMYCIN
     Indication: PSEUDOMONAS INFECTION
     Route: 065
  7. DOXYCYCLINE. [Suspect]
     Active Substance: DOXYCYCLINE
     Indication: PSEUDOMONAS INFECTION
     Route: 065

REACTIONS (2)
  - Ototoxicity [Unknown]
  - Tinnitus [Unknown]

NARRATIVE: CASE EVENT DATE: 201704
